FAERS Safety Report 8343802-1 (Version None)
Quarter: 2012Q2

REPORT INFORMATION
  Report Type: 
  Country: None (occurrence: None)
  Receive Date: 20120508
  Receipt Date: 20120507
  Transmission Date: 20120825
  Serious: Yes (Life-Threatening, Hospitalization)
  Sender: FDA-Public Use
  Company Number: FR-B.I. PHARMACEUTICALS,INC./RIDGEFIELD-2012-FF-00221FF

PATIENT
  Age: 52 Year
  Sex: Female

DRUGS (5)
  1. MOBIC [Suspect]
     Indication: INTERCOSTAL NEURALGIA
     Route: 030
     Dates: start: 20111119, end: 20111124
  2. FLURBIPROFEN [Suspect]
     Indication: INTERCOSTAL NEURALGIA
     Route: 048
     Dates: start: 20111211, end: 20111217
  3. LORAZEPAM [Concomitant]
     Route: 048
  4. MOBIC [Suspect]
     Route: 030
     Dates: start: 20111205, end: 20111210
  5. OLMESARTAN MEDOXOMIL AND HYDROCHLOROTHIZIDE [Concomitant]
     Route: 048

REACTIONS (7)
  - DRUG RASH WITH EOSINOPHILIA AND SYSTEMIC SYMPTOMS [None]
  - HYPERTHERMIA [None]
  - CYTOLYTIC HEPATITIS [None]
  - HYPOTENSION [None]
  - RENAL FAILURE ACUTE [None]
  - VOMITING [None]
  - NAUSEA [None]
